FAERS Safety Report 20021170 (Version 1)
Quarter: 2021Q4

REPORT INFORMATION
  Report Type: Report from Study
  Country: FR (occurrence: None)
  Receive Date: 20211101
  Receipt Date: 20211101
  Transmission Date: 20220303
  Serious: Yes (Life-Threatening)
  Sender: FDA-Public Use
  Company Number: FR-Merck Healthcare KGaA-9158980

PATIENT
  Age: 53 Year
  Sex: Male
  Weight: 97 kg

DRUGS (9)
  1. REBIF [Suspect]
     Active Substance: INTERFERON BETA-1A
     Indication: Coronavirus infection
     Dates: start: 20200327, end: 20200330
  2. LOPINAVIR [Suspect]
     Active Substance: LOPINAVIR
     Indication: Coronavirus infection
     Dosage: 640 (UNSPECIFIED UNITS)
     Dates: start: 20200327, end: 20200410
  3. RITONAVIR [Suspect]
     Active Substance: RITONAVIR
     Indication: Coronavirus infection
     Dosage: 160 (UNSPECIFIED UNITS)
     Dates: start: 20200327, end: 20200410
  4. KALETRA [Suspect]
     Active Substance: LOPINAVIR\RITONAVIR
     Indication: Product used for unknown indication
     Dosage: 800/200 (UNSPECIFIED UNIT)
     Route: 048
     Dates: start: 20200327, end: 20200409
  5. ATORVASTATIN [Concomitant]
     Active Substance: ATORVASTATIN
     Indication: Dyslipidaemia
     Dosage: 10 (UNSPECIFIED UNIT)
     Route: 048
  6. INSULIN NOS [Concomitant]
     Active Substance: INSULIN NOS
     Indication: Diabetes mellitus
     Dosage: 2 (UNSPECIFIED UNIT)
     Route: 058
     Dates: start: 20200326, end: 20200414
  7. ACETAMINOPHEN [Concomitant]
     Active Substance: ACETAMINOPHEN
     Indication: Pain
     Dosage: 2000 (UNSPECIFIED UNIT)
     Route: 048
     Dates: start: 20200325, end: 20200408
  8. ENOXAPARIN SODIUM [Concomitant]
     Active Substance: ENOXAPARIN SODIUM
     Indication: Product used for unknown indication
     Dosage: 0.6 (UNSPECIFIED UNIT).
     Route: 058
     Dates: start: 20200327, end: 20200415
  9. GLICLAZIDE [Concomitant]
     Active Substance: GLICLAZIDE
     Indication: Diabetes mellitus
     Dosage: 60 (UNSPECIFIED UNIT)
     Route: 048

REACTIONS (2)
  - Hepatic cytolysis [Recovered/Resolved]
  - Acute respiratory distress syndrome [Recovering/Resolving]

NARRATIVE: CASE EVENT DATE: 20200328
